FAERS Safety Report 7628734-6 (Version None)
Quarter: 2011Q3

REPORT INFORMATION
  Report Type: 
  Country: None (occurrence: None)
  Receive Date: 20110722
  Receipt Date: 20110715
  Transmission Date: 20111222
  Serious: Yes (Hospitalization, Other)
  Sender: FDA-Public Use
  Company Number: JP-JNJFOC-20110700528

PATIENT
  Sex: Female

DRUGS (3)
  1. DOXORUBICIN HCL [Suspect]
     Indication: OVARIAN CANCER RECURRENT
     Route: 042
     Dates: start: 20110601
  2. CARBOPLATIN [Suspect]
     Indication: OVARIAN CANCER RECURRENT
     Route: 041
     Dates: start: 20110601
  3. PACLITAXEL [Suspect]
     Indication: OVARIAN CANCER RECURRENT
     Route: 065
     Dates: start: 20110601

REACTIONS (1)
  - SHOCK [None]
